FAERS Safety Report 8359914-2 (Version None)
Quarter: 2012Q2

REPORT INFORMATION
  Report Type: 
  Country: None (occurrence: None)
  Receive Date: 20120515
  Receipt Date: 20120510
  Transmission Date: 20120825
  Serious: Yes (Hospitalization, Other)
  Sender: FDA-Public Use
  Company Number: GB-PFIZER INC-2012114120

PATIENT
  Sex: Female

DRUGS (1)
  1. VARENICLINE TARTRATE [Suspect]
     Indication: SMOKING CESSATION THERAPY
     Dosage: 1 MG, 2X/DAY
     Dates: start: 20120101, end: 20120101

REACTIONS (20)
  - PYREXIA [None]
  - DISTURBANCE IN ATTENTION [None]
  - DRUG HYPERSENSITIVITY [None]
  - SKIN DISCOMFORT [None]
  - SWELLING FACE [None]
  - IMPAIRED WORK ABILITY [None]
  - RASH [None]
  - DECREASED APPETITE [None]
  - ABASIA [None]
  - OEDEMA PERIPHERAL [None]
  - IMMOBILE [None]
  - APHAGIA [None]
  - STRESS [None]
  - BLISTER [None]
  - SLEEP DISORDER [None]
  - SKIN INFECTION [None]
  - DISCOMFORT [None]
  - PAIN [None]
  - SKIN EXFOLIATION [None]
  - FATIGUE [None]
